FAERS Safety Report 14251813 (Version 2)
Quarter: 2017Q4

REPORT INFORMATION
  Report Type: Spontaneous
  Country: IT (occurrence: IT)
  Receive Date: 20171205
  Receipt Date: 20171210
  Transmission Date: 20180321
  Serious: Yes (Other)
  Sender: FDA-Public Use
  Company Number: IT-ASTRAZENECA-2017SF22723

PATIENT
  Age: 54 Year
  Sex: Female

DRUGS (7)
  1. IRESSA [Suspect]
     Active Substance: GEFITINIB
     Indication: LUNG ADENOCARCINOMA
     Route: 048
  2. PANTORC [Concomitant]
     Active Substance: PANTOPRAZOLE SODIUM
     Dosage: 40MG
     Route: 048
  3. DELTACORTENE [Concomitant]
     Active Substance: PREDNISONE
     Dosage: 37.5MG
     Route: 048
  4. IRESSA [Suspect]
     Active Substance: GEFITINIB
     Indication: LUNG ADENOCARCINOMA
     Route: 048
     Dates: start: 20170525, end: 20171018
  5. LEXOTAN [Concomitant]
     Active Substance: BROMAZEPAM
     Dosage: 10GTT
     Route: 048
  6. DUROGESIC [Concomitant]
     Active Substance: FENTANYL
     Dosage: 75 MICROGRAMMI/HOUR TRANSDERMIC PATCH
  7. PARACODINA [Concomitant]
     Active Substance: ASPIRIN\CAFFEINE\DIHYDROCODEINE BITARTRATE
     Dosage: 10.25MG/ML
     Route: 048

REACTIONS (1)
  - Neuropathy peripheral [Not Recovered/Not Resolved]

NARRATIVE: CASE EVENT DATE: 20170827
